FAERS Safety Report 11027763 (Version 2)
Quarter: 2015Q2

REPORT INFORMATION
  Report Type: Spontaneous
  Country: US (occurrence: US)
  Receive Date: 20150414
  Receipt Date: 20150525
  Transmission Date: 20150821
  Serious: Yes (Other)
  Sender: FDA-Public Use
  Company Number: US-JNJFOC-20130618902

PATIENT
  Sex: Female
  Weight: 70.31 kg

DRUGS (1)
  1. TRINESSA [Suspect]
     Active Substance: ETHINYL ESTRADIOL\NORGESTIMATE
     Indication: ORAL CONTRACEPTION
     Route: 048
     Dates: start: 2005, end: 2011

REACTIONS (1)
  - Hepatic neoplasm [Recovering/Resolving]

NARRATIVE: CASE EVENT DATE: 2011
